FAERS Safety Report 6249003-5 (Version None)
Quarter: 2009Q2

REPORT INFORMATION
  Report Type: 
  Country: None (occurrence: None)
  Receive Date: 20090624
  Receipt Date: 20090624
  Transmission Date: 20091009
  Serious: Yes (Other)
  Sender: FDA-Public Use
  Company Number: None

PATIENT
  Age: 50 Year
  Sex: Female
  Weight: 80.7403 kg

DRUGS (1)
  1. TRANSDERM SCOP [Suspect]
     Route: 062

REACTIONS (4)
  - DYSKINESIA [None]
  - MOVEMENT DISORDER [None]
  - SPEECH DISORDER [None]
  - TREMOR [None]
